FAERS Safety Report 6267293-X (Version None)
Quarter: 2009Q3

REPORT INFORMATION
  Report Type: 
  Country: None (occurrence: None)
  Receive Date: 20090714
  Receipt Date: 20090701
  Transmission Date: 20100115
  Serious: Yes (Hospitalization, Other)
  Sender: FDA-Public Use
  Company Number: IN-PFIZER INC-2009235055

PATIENT
  Age: 22 Year

DRUGS (1)
  1. PHENYTOIN SODIUM AND PHENYTOIN [Suspect]
     Indication: EPILEPSY
     Dosage: 300 MG, 1X/DAY

REACTIONS (13)
  - ACNE [None]
  - ANAEMIA [None]
  - ATAXIA [None]
  - BONE PAIN [None]
  - DRUG TOXICITY [None]
  - FRACTURE [None]
  - GINGIVAL HYPERTROPHY [None]
  - HIRSUTISM [None]
  - LYMPHADENOPATHY [None]
  - NYSTAGMUS [None]
  - OSTEOMALACIA [None]
  - SEDATION [None]
  - TREATMENT NONCOMPLIANCE [None]
